FAERS Safety Report 18710846 (Version 1)
Quarter: 2021Q1

REPORT INFORMATION
  Report Type: Spontaneous
  Country: HU (occurrence: HU)
  Receive Date: 20210107
  Receipt Date: 20210107
  Transmission Date: 20210419
  Serious: Yes (Death, Other)
  Sender: FDA-Public Use
  Company Number: HU-ASTRAZENECA-2021A001133

PATIENT
  Sex: Female

DRUGS (1)
  1. TICAGRELOR. [Suspect]
     Active Substance: TICAGRELOR
     Dosage: UNKNOWN
     Route: 048

REACTIONS (6)
  - Metastases to liver [Unknown]
  - Malaise [Unknown]
  - Vaginal haemorrhage [Unknown]
  - Bladder cancer stage IV [Fatal]
  - Metastases to kidney [Unknown]
  - Metastases to breast [Unknown]
